FAERS Safety Report 9204006 (Version 1)
Quarter: 2013Q2

REPORT INFORMATION
  Report Type: Spontaneous
  Country: PT (occurrence: PT)
  Receive Date: 20130402
  Receipt Date: 20130402
  Transmission Date: 20140414
  Serious: Yes (Other)
  Sender: FDA-Public Use
  Company Number: PHHY2013PT017214

PATIENT
  Age: 60 Year
  Sex: Female

DRUGS (9)
  1. RASILEZ [Suspect]
     Indication: HYPERTENSION
     Dosage: 150 MG, UNK
     Dates: start: 201112, end: 201201
  2. RASILEZ [Suspect]
     Dosage: 300 MG, AT NIGHT
     Dates: start: 201201
  3. RASILEZ [Suspect]
     Dosage: 300 MG, IN MORNING
     Dates: end: 201301
  4. CO-DIOVAN [Concomitant]
     Indication: HYPERTENSION
     Dosage: 1 DF, BID (160 MG VALS AND 25 MG HCTZ)
     Dates: start: 2007
  5. CO-DIOVAN [Concomitant]
     Dosage: 1 DF, BID  (160 MG VALS AND 12.5 MG HCTZ)
     Dates: start: 201207
  6. CO-DIOVAN [Concomitant]
     Dosage: 80 MG VALS AND 12.5 MG HCT
  7. SIMBICORT TURBUHALER [Concomitant]
     Indication: ASTHMA
     Dosage: UPON NEEDED
     Dates: start: 2003
  8. CRESTOR [Concomitant]
     Indication: DYSLIPIDAEMIA
     Dates: start: 2008
  9. EXFORGE [Concomitant]
     Dosage: 80 MG VALS AND 5 MG AMLO

REACTIONS (4)
  - Lichen planus [Recovering/Resolving]
  - Rash maculo-papular [Recovering/Resolving]
  - Papule [Recovering/Resolving]
  - Blood pressure inadequately controlled [Unknown]
